FAERS Safety Report 12860633 (Version 1)
Quarter: 2016Q4

REPORT INFORMATION
  Report Type: Spontaneous
  Country: US (occurrence: US)
  Receive Date: 20161019
  Receipt Date: 20161019
  Transmission Date: 20170207
  Serious: No
  Sender: FDA-Public Use
  Company Number: US-ASTRAZENECA-2016SF07568

PATIENT
  Age: 781 Month
  Sex: Male
  Weight: 74.8 kg

DRUGS (9)
  1. CRESTOR [Suspect]
     Active Substance: ROSUVASTATIN CALCIUM
     Indication: BLOOD CHOLESTEROL INCREASED
     Route: 048
     Dates: start: 201010
  2. NIACIN. [Concomitant]
     Active Substance: NIACIN
  3. BABY ASPIRIN [Concomitant]
     Active Substance: ASPIRIN
  4. MULTIVITAMIN [Concomitant]
     Active Substance: VITAMINS
     Indication: NUTRITIONAL SUPPLEMENTATION
  5. COQ10 [Concomitant]
     Active Substance: UBIDECARENONE
  6. CRESTOR [Suspect]
     Active Substance: ROSUVASTATIN CALCIUM
     Indication: BLOOD CHOLESTEROL INCREASED
     Route: 048
     Dates: start: 201607
  7. FISH OIL [Concomitant]
     Active Substance: FISH OIL
     Indication: INFLAMMATION
  8. GLUCOSAMINE [Concomitant]
     Active Substance: GLUCOSAMINE
  9. TURMERIC [Concomitant]
     Active Substance: TURMERIC
     Indication: INFLAMMATION

REACTIONS (6)
  - Intentional product misuse [Unknown]
  - Malaise [Unknown]
  - Muscle spasms [Not Recovered/Not Resolved]
  - Headache [Not Recovered/Not Resolved]
  - Myalgia [Unknown]
  - Eczema [Not Recovered/Not Resolved]

NARRATIVE: CASE EVENT DATE: 201607
